FAERS Safety Report 8908500 (Version 1)
Quarter: 2012Q4

REPORT INFORMATION
  Report Type: Report from Study
  Country: US (occurrence: US)
  Receive Date: 20121114
  Receipt Date: 20121114
  Transmission Date: 20130627
  Serious: No
  Sender: FDA-Public Use
  Company Number: US-VERTEX PHARMACEUTICAL INC.-2012-024276

PATIENT
  Age: 53 Year
  Sex: Male

DRUGS (5)
  1. VX-950 (TELAPREVIR) [Suspect]
     Indication: HEPATITIS C
     Dosage: 375 mg, UNK
     Route: 048
  2. RIBAVIRIN [Suspect]
     Indication: HEPATITIS C
     Dosage: 200 mg, UNK
     Route: 048
  3. PEGASYS [Suspect]
     Indication: HEPATITIS C
     Dosage: UNK
     Route: 058
  4. ZOLOFT [Concomitant]
     Dosage: 25 mg, UNK
     Route: 048
  5. TRIAMTERENE AND HYDROCHLOROTHIAZID [Concomitant]
     Dosage: UNK mg, UNK
     Route: 048

REACTIONS (1)
  - Depression [Unknown]
